FAERS Safety Report 19866244 (Version 1)
Quarter: 2021Q3

REPORT INFORMATION
  Report Type: Other
  Country: CA (occurrence: CA)
  Receive Date: 20210922
  Receipt Date: 20210922
  Transmission Date: 20211014
  Serious: Yes (Death, Hospitalization, Other)
  Sender: FDA-Public Use
  Company Number: CA-APOTEX-2021AP042708

PATIENT
  Age: 24 Year
  Sex: Female

DRUGS (3)
  1. GABAPENTIN. [Suspect]
     Active Substance: GABAPENTIN
     Indication: OVERDOSE
     Dosage: UNK
     Route: 048
  2. MORPHINE SULFATE. [Suspect]
     Active Substance: MORPHINE SULFATE
     Indication: OVERDOSE
     Dosage: UNK
     Route: 048
  3. ACETAMINOPHEN. [Suspect]
     Active Substance: ACETAMINOPHEN
     Indication: OVERDOSE
     Dosage: UNK
     Route: 048

REACTIONS (7)
  - Hypoglycaemia [Fatal]
  - Overdose [Fatal]
  - Encephalopathy [Fatal]
  - Acute hepatic failure [Fatal]
  - Coagulopathy [Fatal]
  - Continuous haemodiafiltration [Fatal]
  - Haemodialysis [Fatal]
